FAERS Safety Report 22021274 (Version 3)
Quarter: 2023Q1

REPORT INFORMATION
  Report Type: Spontaneous
  Country: US (occurrence: US)
  Receive Date: 20230222
  Receipt Date: 20230331
  Transmission Date: 20230418
  Serious: No
  Sender: FDA-Public Use
  Company Number: US-PFIZER INC-PV202300031032

PATIENT
  Age: 14 Year
  Sex: Male

DRUGS (1)
  1. GENOTROPIN [Suspect]
     Active Substance: SOMATROPIN
     Dosage: 2.4 MG (MONDAY-FRIDAY)
     Dates: start: 20230201

REACTIONS (4)
  - Poor quality device used [Unknown]
  - Device leakage [Unknown]
  - Incorrect dose administered by device [Unknown]
  - Needle issue [Unknown]
